FAERS Safety Report 5242652-2 (Version None)
Quarter: 2007Q1

REPORT INFORMATION
  Report Type: 
  Country: None (occurrence: None)
  Receive Date: 20070221
  Receipt Date: 20070212
  Transmission Date: 20070707
  Serious: Yes (Hospitalization)
  Sender: FDA-Public Use
  Company Number: IT-ROCHE-482342

PATIENT
  Age: 60 Year
  Sex: Male

DRUGS (4)
  1. TICLID [Suspect]
     Indication: CAROTID ARTERY STENOSIS
     Route: 048
     Dates: start: 20061210, end: 20070121
  2. MONTELUKAST SODIUM [Concomitant]
     Indication: ASTHMA
     Route: 048
     Dates: start: 20061210, end: 20070121
  3. EUGLUCON [Concomitant]
     Indication: DIABETES MELLITUS
     Route: 048
  4. COTAREG [Concomitant]
     Indication: HYPERTENSION
     Route: 048

REACTIONS (4)
  - BLOOD CREATININE INCREASED [None]
  - LIVER DISORDER [None]
  - TRANSAMINASES INCREASED [None]
  - URTICARIA [None]
